FAERS Safety Report 8455356 (Version 3)
Quarter: 2012Q4

REPORT INFORMATION
  Report Type: 
  Country: BR (occurrence: BR)
  Receive Date: 20120313
  Receipt Date: 20121008
  Transmission Date: 20130627
  Serious: Yes (Hospitalization)
  Sender: FDA-Public Use
  Company Number: BR-NOVOPROD-346456

PATIENT
  Age: 55 Year
  Sex: Male
  Weight: 79 kg

DRUGS (7)
  1. NOVOLIN N [Suspect]
     Indication: TYPE 2 DIABETES MELLITUS
     Dosage: 25 IU, qd
     Route: 058
     Dates: start: 20090302
  2. CELOZOC [Concomitant]
     Dosage: 01 tablet / oral
     Dates: start: 20090302
  3. SIMVASTATIN [Concomitant]
     Indication: HYPERCHOLESTEROLAEMIA
     Dosage: 1 Tab, qd
     Route: 048
     Dates: start: 20090302
  4. MONOCORDIL [Concomitant]
     Indication: HYPERTENSION
     Dosage: 1 Tab, qd
     Route: 048
     Dates: start: 20090302
  5. APRESOLINA [Concomitant]
     Indication: HYPERTENSION
     Dosage: 1 Tab, qd
     Route: 048
     Dates: start: 20110302
  6. SIFROL [Concomitant]
     Dosage: 1 Tab, qd
     Route: 048
     Dates: start: 20100302
  7. DIAZEPAN [Concomitant]
     Indication: INSOMNIA
     Dosage: oral
     Route: 048
     Dates: start: 20090302

REACTIONS (2)
  - Drug ineffective [Not Recovered/Not Resolved]
  - Blood glucose [Not Recovered/Not Resolved]
